FAERS Safety Report 5442686-9 (Version None)
Quarter: 2007Q3

REPORT INFORMATION
  Report Type: 
  Country: None (occurrence: None)
  Receive Date: 20070904
  Receipt Date: 20070828
  Transmission Date: 20080115
  Serious: Yes (Other)
  Sender: FDA-Public Use
  Company Number: GB-ROXANE LABORATORIES, INC-2007-BP-19998RO

PATIENT
  Age: 31 Year
  Sex: Male

DRUGS (2)
  1. METHOTREXATE [Suspect]
     Indication: PSORIASIS
  2. INFLIXIMAB [Suspect]
     Indication: PSORIASIS

REACTIONS (7)
  - COUGH [None]
  - GRANULOMA [None]
  - MALAISE [None]
  - OEDEMA [None]
  - PULMONARY TUBERCULOSIS [None]
  - VISUAL DISTURBANCE [None]
  - WEIGHT DECREASED [None]
